FAERS Safety Report 9233585 (Version 1)
Quarter: 2013Q2

REPORT INFORMATION
  Report Type: Spontaneous
  Country: US (occurrence: US)
  Receive Date: 20130416
  Receipt Date: 20130416
  Transmission Date: 20140414
  Serious: No
  Sender: FDA-Public Use
  Company Number: US-BANPHARM-20120425

PATIENT
  Age: 88 Year
  Sex: Male
  Weight: 96.16 kg

DRUGS (11)
  1. ALEVE LIQUID GELS 220MG [Suspect]
     Dosage: 1 DF, QD,
     Route: 048
     Dates: start: 201210
  2. NORVASC [Concomitant]
  3. TENORMIN [Concomitant]
  4. LASIX [Concomitant]
  5. ASPIRIN LOW DOSE 81 MG [Concomitant]
  6. LIPITOR [Concomitant]
  7. STARLIX [Concomitant]
  8. JANUVIA [Concomitant]
  9. FISH OIL [Concomitant]
  10. FLAXSEED OIL [Concomitant]
  11. SAW PALMETTO [Concomitant]

REACTIONS (2)
  - Blood glucose increased [Unknown]
  - Incorrect drug administration duration [Unknown]
